FAERS Safety Report 6417636-9 (Version None)
Quarter: 2009Q4

REPORT INFORMATION
  Report Type: 
  Country: None (occurrence: None)
  Receive Date: 20091028
  Receipt Date: 20091026
  Transmission Date: 20100525
  Serious: Yes (Other)
  Sender: FDA-Public Use
  Company Number: US-TEVA-212507USA

PATIENT
  Sex: Male

DRUGS (5)
  1. ATENOLOL [Suspect]
     Indication: ARTERIOSCLEROSIS CORONARY ARTERY
     Route: 048
     Dates: start: 20091011, end: 20091013
  2. GABAPENTIN [Concomitant]
     Indication: DIABETIC NEUROPATHY
  3. INSULIN [Concomitant]
     Indication: TYPE 2 DIABETES MELLITUS
  4. ENALAPRIL [Concomitant]
     Indication: ARTERIOSCLEROSIS CORONARY ARTERY
  5. FUROSEMIDE [Concomitant]
     Indication: CARDIAC FAILURE CONGESTIVE

REACTIONS (5)
  - ANGIOEDEMA [None]
  - CHEST DISCOMFORT [None]
  - FACE OEDEMA [None]
  - LOCALISED OEDEMA [None]
  - WHEEZING [None]
